FAERS Safety Report 4324132-1 (Version None)
Quarter: 2004Q1

REPORT INFORMATION
  Report Type: 
  Country: None (occurrence: None)
  Receive Date: 20040326
  Receipt Date: 20031229
  Transmission Date: 20041129
  Serious: No
  Sender: FDA-Public Use
  Company Number: US-GLAXOSMITHKLINE-A0490768A

PATIENT
  Age: 68 Year
  Sex: Male

DRUGS (10)
  1. ADVAIR DISKUS 100/50 [Suspect]
     Indication: ASTHMA
     Dosage: 1PUFF TWICE PER DAY
     Route: 055
     Dates: start: 20010101
  2. COLGATE SENSITIVE TOOTHPASTE [Suspect]
     Dates: start: 20031001, end: 20031101
  3. PREVACID [Suspect]
     Dosage: 30MG UNKNOWN
     Route: 048
  4. PROTONIX [Suspect]
     Dosage: 40MG TWICE PER DAY
     Route: 048
  5. FOSAMAX [Concomitant]
  6. FLONASE [Concomitant]
  7. CALTRATE [Concomitant]
  8. MULTI-VITAMIN [Concomitant]
  9. VITAMIN C [Concomitant]
  10. VITAMIN E [Concomitant]

REACTIONS (4)
  - ABDOMINAL PAIN [None]
  - FLATULENCE [None]
  - LOOSE STOOLS [None]
  - OESOPHAGEAL SPASM [None]
